FAERS Safety Report 18508320 (Version 29)
Quarter: 2025Q2

REPORT INFORMATION
  Report Type: Report from Study
  Country: CA (occurrence: CA)
  Receive Date: 20201116
  Receipt Date: 20250505
  Transmission Date: 20250716
  Serious: Yes (Hospitalization, Other)
  Sender: TAKEDA
  Company Number: CA-SHIRE-CA201918937

PATIENT
  Age: 53 Year
  Sex: Female

DRUGS (44)
  1. ICATIBANT [Suspect]
     Active Substance: ICATIBANT ACETATE
     Indication: Hereditary angioedema
  2. ICATIBANT [Suspect]
     Active Substance: ICATIBANT ACETATE
     Indication: Hereditary angioedema with C1 esterase inhibitor deficiency
  3. ICATIBANT [Suspect]
     Active Substance: ICATIBANT ACETATE
  4. ICATIBANT [Suspect]
     Active Substance: ICATIBANT ACETATE
  5. ICATIBANT [Suspect]
     Active Substance: ICATIBANT ACETATE
  6. ICATIBANT [Suspect]
     Active Substance: ICATIBANT ACETATE
  7. ICATIBANT [Suspect]
     Active Substance: ICATIBANT ACETATE
  8. ICATIBANT [Suspect]
     Active Substance: ICATIBANT ACETATE
  9. ICATIBANT [Suspect]
     Active Substance: ICATIBANT ACETATE
  10. ICATIBANT [Suspect]
     Active Substance: ICATIBANT ACETATE
  11. ICATIBANT [Suspect]
     Active Substance: ICATIBANT ACETATE
  12. ICATIBANT [Suspect]
     Active Substance: ICATIBANT ACETATE
  13. ICATIBANT [Suspect]
     Active Substance: ICATIBANT ACETATE
  14. ICATIBANT [Suspect]
     Active Substance: ICATIBANT ACETATE
  15. ICATIBANT [Suspect]
     Active Substance: ICATIBANT ACETATE
  16. ICATIBANT [Suspect]
     Active Substance: ICATIBANT ACETATE
  17. ICATIBANT [Suspect]
     Active Substance: ICATIBANT ACETATE
  18. ICATIBANT [Suspect]
     Active Substance: ICATIBANT ACETATE
  19. ICATIBANT [Suspect]
     Active Substance: ICATIBANT ACETATE
  20. ICATIBANT [Suspect]
     Active Substance: ICATIBANT ACETATE
  21. ICATIBANT [Suspect]
     Active Substance: ICATIBANT ACETATE
  22. ICATIBANT [Suspect]
     Active Substance: ICATIBANT ACETATE
  23. ICATIBANT [Suspect]
     Active Substance: ICATIBANT ACETATE
  24. ICATIBANT [Suspect]
     Active Substance: ICATIBANT ACETATE
  25. ICATIBANT [Suspect]
     Active Substance: ICATIBANT ACETATE
  26. ICATIBANT [Suspect]
     Active Substance: ICATIBANT ACETATE
  27. ICATIBANT [Suspect]
     Active Substance: ICATIBANT ACETATE
  28. ICATIBANT [Suspect]
     Active Substance: ICATIBANT ACETATE
  29. ICATIBANT [Suspect]
     Active Substance: ICATIBANT ACETATE
  30. ICATIBANT [Suspect]
     Active Substance: ICATIBANT ACETATE
  31. ICATIBANT [Suspect]
     Active Substance: ICATIBANT ACETATE
  32. ICATIBANT [Suspect]
     Active Substance: ICATIBANT ACETATE
  33. ICATIBANT [Suspect]
     Active Substance: ICATIBANT ACETATE
  34. ICATIBANT [Suspect]
     Active Substance: ICATIBANT ACETATE
  35. ICATIBANT [Suspect]
     Active Substance: ICATIBANT ACETATE
  36. ICATIBANT [Suspect]
     Active Substance: ICATIBANT ACETATE
  37. ICATIBANT [Suspect]
     Active Substance: ICATIBANT ACETATE
  38. ICATIBANT [Suspect]
     Active Substance: ICATIBANT ACETATE
  39. ICATIBANT [Suspect]
     Active Substance: ICATIBANT ACETATE
  40. TAKHZYRO [Suspect]
     Active Substance: LANADELUMAB-FLYO
     Indication: Hereditary angioedema with C1 esterase inhibitor deficiency
     Dosage: 300 MILLIGRAM, Q3WEEKS
     Dates: start: 20210209
  41. TAKHZYRO [Suspect]
     Active Substance: LANADELUMAB-FLYO
     Dosage: 300 MILLIGRAM, Q3WEEKS
     Dates: start: 20210902
  42. TAKHZYRO [Suspect]
     Active Substance: LANADELUMAB-FLYO
     Dosage: 2 DOSAGE FORM, Q3WEEKS
  43. DANAZOL [Concomitant]
     Active Substance: DANAZOL
     Indication: Product used for unknown indication
     Dosage: 100 MILLIGRAM, QD
  44. ORLADEYO [Concomitant]
     Active Substance: BEROTRALSTAT HYDROCHLORIDE

REACTIONS (15)
  - Pleurisy [Unknown]
  - Pneumonia [Unknown]
  - Oropharyngeal discomfort [Recovering/Resolving]
  - Injury [Unknown]
  - COVID-19 [Unknown]
  - Musculoskeletal chest pain [Not Recovered/Not Resolved]
  - Arthralgia [Recovered/Resolved]
  - Drug ineffective [Unknown]
  - Vomiting [Unknown]
  - Myalgia [Recovered/Resolved]
  - Back pain [Unknown]
  - Stress [Recovered/Resolved]
  - Hereditary angioedema [Recovered/Resolved]
  - Incorrect product administration duration [Recovering/Resolving]
  - Expired product administered [Unknown]

NARRATIVE: CASE EVENT DATE: 20201101
